FAERS Safety Report 5236767-2 (Version None)
Quarter: 2007Q1

REPORT INFORMATION
  Report Type: 
  Country: None (occurrence: None)
  Receive Date: 20061208
  Receipt Date: 20050217
  Transmission Date: 20070707
  Serious: Yes (Other)
  Sender: FDA-Public Use
  Company Number: 2005UW00914

PATIENT

DRUGS (2)
  1. CRESTOR [Suspect]
  2. ZOLOFT [Suspect]
     Dosage: SWITCHED TO TAKING ONE HALF OF A TABLET

REACTIONS (3)
  - DEPRESSION [None]
  - GAIT DISTURBANCE [None]
  - ILL-DEFINED DISORDER [None]
